FAERS Safety Report 8351533 (Version 7)
Quarter: 2016Q3

REPORT INFORMATION
  Report Type: Spontaneous
  Country: PR (occurrence: PR)
  Receive Date: 20120124
  Receipt Date: 20160920
  Transmission Date: 20161109
  Serious: Yes (Hospitalization, Disabling, Other)
  Sender: FDA-Public Use
  Company Number: PR-MERCK-1112USA02420

PATIENT
  Sex: Female
  Weight: 68.39 kg

DRUGS (9)
  1. FOSAMAX [Suspect]
     Active Substance: ALENDRONATE SODIUM
     Indication: OSTEOPENIA
     Dosage: 70 MG, QW
     Route: 048
     Dates: start: 20030912, end: 20040918
  2. FOSAMAX [Suspect]
     Active Substance: ALENDRONATE SODIUM
     Indication: OSTEOPOROSIS
     Dosage: 70 MG, QD
     Route: 048
     Dates: start: 2000
  3. FOSAMAX PLUS D [Suspect]
     Active Substance: ALENDRONATE SODIUM\CHOLECALCIFEROL
     Indication: OSTEOPOROSIS
     Dosage: 70 MG, QW
     Route: 048
     Dates: start: 20070522
  4. FOSAMAX PLUS D [Suspect]
     Active Substance: ALENDRONATE SODIUM\CHOLECALCIFEROL
     Dosage: 70 MG, QW
     Route: 048
     Dates: start: 20100521, end: 20100820
  5. FOSAMAX PLUS D [Suspect]
     Active Substance: ALENDRONATE SODIUM\CHOLECALCIFEROL
     Indication: OSTEOPENIA
     Dosage: 70 MG, QW
     Route: 048
     Dates: start: 20080606, end: 20090114
  6. ALENDRONATE SODIUM. [Suspect]
     Active Substance: ALENDRONATE SODIUM
     Dosage: 70 MG, QW
     Dates: start: 20100129, end: 20100422
  7. ALENDRONATE SODIUM. [Suspect]
     Active Substance: ALENDRONATE SODIUM
     Dosage: 70 MG, QW
     Route: 048
     Dates: start: 20101002, end: 20101129
  8. FOSAMAX [Suspect]
     Active Substance: ALENDRONATE SODIUM
     Dosage: 70 MG, QW
     Route: 048
     Dates: start: 20070621, end: 20080205
  9. ALENDRONATE SODIUM. [Suspect]
     Active Substance: ALENDRONATE SODIUM
     Indication: OSTEOPOROSIS
     Dosage: 70 MG, QW
     Route: 048
     Dates: start: 20080410, end: 20080506

REACTIONS (64)
  - Lumbar vertebral fracture [Not Recovered/Not Resolved]
  - Musculoskeletal disorder [Unknown]
  - Balance disorder [Unknown]
  - Bone disorder [Unknown]
  - Synovial cyst [Unknown]
  - Cardiac valve disease [Unknown]
  - Fall [Unknown]
  - Oedema peripheral [Unknown]
  - Musculoskeletal disorder [Unknown]
  - Tremor [Unknown]
  - Hepatic enzyme increased [Unknown]
  - Arthralgia [Unknown]
  - Dizziness [Unknown]
  - Fall [Unknown]
  - Spondylolisthesis [Not Recovered/Not Resolved]
  - Facet joint syndrome [Not Recovered/Not Resolved]
  - Adverse drug reaction [Unknown]
  - Cough [Unknown]
  - Skin disorder [Unknown]
  - Synovial cyst [Unknown]
  - Osteoarthritis [Unknown]
  - Muscle spasms [Unknown]
  - Constipation [Unknown]
  - Pelvic fracture [Unknown]
  - Hysterectomy [Unknown]
  - Hypertension [Unknown]
  - Demyelinating polyneuropathy [Unknown]
  - Haemorrhoidal haemorrhage [Unknown]
  - Spondylolysis [Unknown]
  - Diverticulum [Unknown]
  - Nausea [Unknown]
  - Adverse event [Not Recovered/Not Resolved]
  - Appendix disorder [Unknown]
  - Hip fracture [Unknown]
  - Rheumatoid arthritis [Unknown]
  - Exostosis [Unknown]
  - Foot fracture [Unknown]
  - Inappropriate schedule of drug administration [Unknown]
  - Osteoarthritis [Unknown]
  - Drug hypersensitivity [Unknown]
  - Back pain [Unknown]
  - Femur fracture [Not Recovered/Not Resolved]
  - Spinal osteoarthritis [Unknown]
  - Muscular weakness [Unknown]
  - Joint effusion [Unknown]
  - Neuropathy peripheral [Not Recovered/Not Resolved]
  - Gait disturbance [Unknown]
  - Fall [Unknown]
  - Post procedural haemorrhage [Unknown]
  - Dental caries [Unknown]
  - Anxiety [Unknown]
  - Injury [Unknown]
  - Patellofemoral pain syndrome [Unknown]
  - Intervertebral disc protrusion [Unknown]
  - Dyspnoea [Unknown]
  - Poor quality sleep [Unknown]
  - Spinal osteoarthritis [Not Recovered/Not Resolved]
  - Psoriatic arthropathy [Not Recovered/Not Resolved]
  - Lacunar infarction [Unknown]
  - Cerebral ischaemia [Unknown]
  - Alopecia [Unknown]
  - Arthralgia [Unknown]
  - Pain in extremity [Unknown]
  - Wrist fracture [Unknown]

NARRATIVE: CASE EVENT DATE: 2000
